FAERS Safety Report 20869468 (Version 2)
Quarter: 2022Q4

REPORT INFORMATION
  Report Type: Spontaneous
  Country: RU (occurrence: None)
  Receive Date: 20220524
  Receipt Date: 20221111
  Transmission Date: 20230113
  Serious: Yes (Hospitalization, Other)
  Sender: FDA-Public Use
  Company Number: RU-ROCHE-3102068

PATIENT
  Age: 79 Year
  Sex: Female

DRUGS (3)
  1. ATEZOLIZUMAB [Suspect]
     Active Substance: ATEZOLIZUMAB
     Indication: Hepatocellular carcinoma
     Dosage: ON 25/FEB/2022, MOST RECENT DOSE WAS ADMINISTERED.
     Route: 041
     Dates: start: 20210607
  2. BEVACIZUMAB [Suspect]
     Active Substance: BEVACIZUMAB
     Indication: Hepatocellular carcinoma
     Dosage: ON 25/FEB/2022, MOST RECENT DOSE WAS ADMINISTERED.
     Route: 042
     Dates: start: 20210607
  3. DENOSUMAB [Suspect]
     Active Substance: DENOSUMAB
     Indication: Hepatocellular carcinoma
     Dosage: ON 25/FEB/2022, MOST RECENT DOSE WAS ADMINISTERED.
     Route: 058
     Dates: start: 20210607

REACTIONS (6)
  - Lacunar infarction [Unknown]
  - Cerebral artery stenosis [Unknown]
  - Pyramidal tract syndrome [Unknown]
  - Cerebrovascular accident [Unknown]
  - Alpha 1 foetoprotein increased [Unknown]
  - Blood pressure increased [Unknown]

NARRATIVE: CASE EVENT DATE: 20220304
